FAERS Safety Report 5084252-3 (Version None)
Quarter: 2006Q3

REPORT INFORMATION
  Report Type: 
  Country: None (occurrence: None)
  Receive Date: 20060821
  Receipt Date: 20060511
  Transmission Date: 20061208
  Serious: No
  Sender: FDA-Public Use
  Company Number: US-BRISTOL-MYERS SQUIBB COMPANY-13374962

PATIENT
  Age: 72 Year
  Sex: Female
  Weight: 52 kg

DRUGS (5)
  1. TEQUIN [Suspect]
     Indication: SINUSITIS
  2. TEQUIN [Suspect]
     Indication: PHARYNGITIS
  3. TAMBOCOR [Concomitant]
  4. CENTRUM SILVER [Concomitant]
  5. FOSAMAX [Concomitant]

REACTIONS (2)
  - DIZZINESS [None]
  - HYPERHIDROSIS [None]
